FAERS Safety Report 7738688-X (Version None)
Quarter: 2011Q3

REPORT INFORMATION
  Report Type: 
  Country: None (occurrence: None)
  Receive Date: 20110908
  Receipt Date: 20110906
  Transmission Date: 20111222
  Serious: No
  Sender: FDA-Public Use
  Company Number: US-PFIZER INC-2011175128

PATIENT
  Sex: Male
  Weight: 82.1 kg

DRUGS (6)
  1. AMITRIPTYLINE [Concomitant]
     Dosage: 150 MG, 1X/DAY
  2. LYRICA [Suspect]
     Indication: BACK INJURY
     Dosage: 75 MG, 2X/DAY
     Route: 048
     Dates: start: 20110301, end: 20110101
  3. ATENOLOL [Concomitant]
     Dosage: 50 MG, 1X/DAY
  4. MICARDIS HCT [Concomitant]
     Indication: HYPERTENSION
     Dosage: 80 MG, UNK
  5. PRILOSEC [Concomitant]
     Dosage: UNK
  6. PROZAC [Concomitant]
     Dosage: UNK

REACTIONS (3)
  - VITAMIN D DECREASED [None]
  - BACK PAIN [None]
  - DIZZINESS [None]
